FAERS Safety Report 23834281 (Version 1)
Quarter: 2024Q2

REPORT INFORMATION
  Report Type: Spontaneous
  Country: US (occurrence: US)
  Receive Date: 20240509
  Receipt Date: 20240509
  Transmission Date: 20240716
  Serious: No
  Sender: FDA-Public Use
  Company Number: US-UCBSA-2023044496

PATIENT
  Sex: Female
  Weight: 86 kg

DRUGS (1)
  1. CIMZIA [Suspect]
     Active Substance: CERTOLIZUMAB PEGOL
     Indication: Psoriatic arthropathy
     Dosage: INJECT 400MG (2 SYRINGES) SUBCUTANEOUSLY AT WEEK 2 AND 4 AS DIRECTED
     Route: 058
     Dates: start: 202306, end: 2023

REACTIONS (1)
  - Maternal exposure during pregnancy [Unknown]

NARRATIVE: CASE EVENT DATE: 20230101
